FAERS Safety Report 25794356 (Version 2)
Quarter: 2025Q3

REPORT INFORMATION
  Report Type: Report from Study
  Country: US (occurrence: US)
  Receive Date: 20250912
  Receipt Date: 20250919
  Transmission Date: 20251021
  Serious: Yes (Other)
  Sender: SUNOVION
  Company Number: US-SMPA-2025SPA011527

PATIENT
  Age: 69 Year
  Sex: Male

DRUGS (2)
  1. ORGOVYX [Suspect]
     Active Substance: RELUGOLIX
     Indication: Prostate cancer
     Route: 048
     Dates: start: 20211122, end: 20211122
  2. ORGOVYX [Suspect]
     Active Substance: RELUGOLIX
     Route: 048

REACTIONS (6)
  - Diabetes mellitus [Unknown]
  - Cardiac disorder [Unknown]
  - Liver disorder [Unknown]
  - Night sweats [Unknown]
  - Diarrhoea [Recovered/Resolved]
  - Fatigue [Unknown]
